FAERS Safety Report 8631476 (Version 3)
Quarter: 2013Q2

REPORT INFORMATION
  Report Type: Spontaneous
  Country: US (occurrence: US)
  Receive Date: 20120622
  Receipt Date: 20130411
  Transmission Date: 20140414
  Serious: Yes (Other)
  Sender: FDA-Public Use
  Company Number: US-RB-041549-12

PATIENT
  Age: 21 Year
  Sex: Female

DRUGS (6)
  1. SUBOXONE TABLETS [Suspect]
     Indication: DRUG DEPENDENCE
     Dosage: 8 MG EVERY 6 HOURS
     Route: 060
  2. HYDROCODONE [Suspect]
     Indication: PRODUCT USED FOR UNKNOWN INDICATION
     Dosage: DOSING DETAILS UNKNOWN
     Route: 065
  3. TEGRETOL [Suspect]
     Indication: PRODUCT USED FOR UNKNOWN INDICATION
     Dosage: DOSING DETAILS UNKNOWN
     Route: 065
  4. DEPAKOTE [Suspect]
     Indication: BIPOLAR DISORDER
     Dosage: DOSING DETAILS UNKNOWN; THROUGH OUT THE PREGNANCY
     Route: 065
  5. ULTRAM [Suspect]
     Indication: PRODUCT USED FOR UNKNOWN INDICATION
     Dosage: DOSING DETAILS UNKNOWN; THROUGH OUT THE PREGNANCY - PRESCRIBED BY DOCTOR
     Route: 065
  6. NICOTINE [Suspect]
     Indication: NICOTINE DEPENDENCE
     Dosage: SMOKING 1.5 PACK DAILY
     Route: 055

REACTIONS (4)
  - Premature delivery [Recovered/Resolved]
  - Premature labour [Recovered/Resolved]
  - Exposure during pregnancy [Recovered/Resolved]
  - Precipitate labour [Recovered/Resolved]
